FAERS Safety Report 9360554 (Version 1)
Quarter: 2013Q2

REPORT INFORMATION
  Report Type: Other
  Country: GB (occurrence: GB)
  Receive Date: 20130621
  Receipt Date: 20130621
  Transmission Date: 20140414
  Serious: Yes (Death, Other)
  Sender: FDA-Public Use
  Company Number: GB-LUPIN PHARMACEUTICALS INC.-E2B_00000955

PATIENT
  Age: 67 Year
  Sex: Female

DRUGS (6)
  1. SERTRALINE [Suspect]
     Indication: NOSOCOMIAL INFECTION
     Route: 048
     Dates: start: 20090901, end: 20090906
  2. OXYCODONE [Suspect]
     Indication: NOSOCOMIAL INFECTION
     Route: 048
     Dates: start: 20090901, end: 20090906
  3. CLARITHROMYCIN [Suspect]
     Indication: NOSOCOMIAL INFECTION
     Route: 048
     Dates: start: 20090901, end: 20090906
  4. AUGMENTIN [Suspect]
     Indication: NOSOCOMIAL INFECTION
     Route: 048
     Dates: start: 20090901, end: 20090906
  5. ERYTHROMYCIN [Suspect]
     Indication: NOSOCOMIAL INFECTION
     Route: 048
     Dates: start: 20090901, end: 20090906
  6. DEXAMETHASONE [Suspect]
     Indication: NOSOCOMIAL INFECTION
     Route: 048
     Dates: start: 20090901, end: 20090906

REACTIONS (2)
  - Respiratory disorder [Fatal]
  - Dyspnoea [Not Recovered/Not Resolved]
